FAERS Safety Report 11663391 (Version 1)
Quarter: 2015Q4

REPORT INFORMATION
  Report Type: Spontaneous
  Country: US (occurrence: None)
  Receive Date: 20151026
  Receipt Date: 20151026
  Transmission Date: 20160304
  Serious: Yes (Hospitalization)
  Sender: FDA-Public Use
  Company Number: None

PATIENT
  Age: 79 Year
  Sex: Female
  Weight: 51.8 kg

DRUGS (1)
  1. NINTEDANIB 150MG [Suspect]
     Active Substance: NINTEDANIB
     Indication: PULMONARY FIBROSIS
     Route: 048

REACTIONS (2)
  - Acute kidney injury [None]
  - Lactic acidosis [None]

NARRATIVE: CASE EVENT DATE: 20151010
